FAERS Safety Report 7761936-7 (Version None)
Quarter: 2011Q3

REPORT INFORMATION
  Report Type: 
  Country: None (occurrence: None)
  Receive Date: 20110920
  Receipt Date: 20110915
  Transmission Date: 20111222
  Serious: Yes (Hospitalization)
  Sender: FDA-Public Use
  Company Number: DE-SANOFI-AVENTIS-2011SA059399

PATIENT
  Age: 62 Year
  Sex: Male
  Weight: 72 kg

DRUGS (6)
  1. DOCETAXEL [Suspect]
     Indication: BREAST CANCER
     Route: 041
     Dates: start: 20110713, end: 20110713
  2. CISPLATIN [Suspect]
     Route: 041
     Dates: start: 20110908, end: 20110908
  3. CETUXIMAB [Suspect]
     Indication: BREAST CANCER
     Route: 041
     Dates: start: 20110713, end: 20110713
  4. DOCETAXEL [Suspect]
     Route: 041
     Dates: start: 20110908, end: 20110908
  5. CISPLATIN [Suspect]
     Indication: BREAST CANCER
     Route: 041
     Dates: start: 20110713, end: 20110713
  6. CETUXIMAB [Suspect]
     Route: 041
     Dates: start: 20110912, end: 20110912

REACTIONS (1)
  - DEVICE DISLOCATION [None]
